FAERS Safety Report 8033477-3 (Version None)
Quarter: 2012Q1

REPORT INFORMATION
  Report Type: 
  Country: None (occurrence: None)
  Receive Date: 20120110
  Receipt Date: 20120105
  Transmission Date: 20120608
  Serious: Yes (Hospitalization, Other)
  Sender: FDA-Public Use
  Company Number: NL-PFIZER INC-2010177070

PATIENT
  Age: 69 Year
  Sex: Male
  Weight: 105 kg

DRUGS (10)
  1. EPLERENONE [Suspect]
     Indication: CARDIAC FAILURE
     Dosage: 25 MG, 2X/DAY
     Dates: start: 20101028, end: 20101220
  2. PERINDOPRIL [Concomitant]
     Dosage: UNK
     Route: 048
     Dates: start: 20080828
  3. SIMVASTATIN [Concomitant]
     Dosage: UNK
     Route: 048
     Dates: start: 20020201
  4. SOTALOL HYDROCHLORIDE [Suspect]
     Dosage: UNK
     Route: 048
     Dates: start: 20101202, end: 20101220
  5. ACENOCOUMAROL [Concomitant]
     Dosage: UNK
     Route: 048
     Dates: start: 20081105
  6. FUROSEMIDE [Concomitant]
     Dosage: UNK
     Route: 048
     Dates: start: 20071210
  7. LANOXIN [Suspect]
     Dosage: UNK
     Route: 048
     Dates: start: 20101210, end: 20101220
  8. AMLODIPINE [Concomitant]
     Dosage: UNK
     Route: 048
     Dates: start: 20100526
  9. CLOPIDOGREL [Concomitant]
     Dosage: UNK
     Route: 048
     Dates: start: 20011221
  10. TRIAMTERENE [Concomitant]
     Dosage: UNK
     Route: 048
     Dates: start: 20080718

REACTIONS (2)
  - BRADYCARDIA [None]
  - RENAL FAILURE ACUTE [None]
